FAERS Safety Report 14629996 (Version 1)
Quarter: 2018Q1

REPORT INFORMATION
  Report Type: Spontaneous
  Country: US (occurrence: US)
  Receive Date: 20180313
  Receipt Date: 20180313
  Transmission Date: 20180509
  Serious: Yes (Life-Threatening, Disabling, Other)
  Sender: FDA-Public Use
  Company Number: None

PATIENT

DRUGS (2)
  1. CIPROFLOXACIN. [Suspect]
     Active Substance: CIPROFLOXACIN
     Route: 048
  2. MEN^S HEALTH VITAMINS [Concomitant]

REACTIONS (6)
  - Hallucination, auditory [None]
  - Bone disorder [None]
  - Skin atrophy [None]
  - Fracture [None]
  - Spinal operation [None]
  - Alopecia [None]

NARRATIVE: CASE EVENT DATE: 2017
